FAERS Safety Report 4360741-1 (Version None)
Quarter: 2004Q2

REPORT INFORMATION
  Report Type: 
  Country: None (occurrence: None)
  Receive Date: 20040520
  Receipt Date: 20040512
  Transmission Date: 20050107
  Serious: Yes (Hospitalization, Other)
  Sender: FDA-Public Use
  Company Number: 200411086DE

PATIENT
  Sex: Male

DRUGS (2)
  1. TAXOTERE [Suspect]
     Indication: PROSTATE CANCER
     Route: 042
     Dates: start: 20040101
  2. ESTRAMUSTIN [Suspect]

REACTIONS (7)
  - DYSENTERY [None]
  - GENERAL PHYSICAL CONDITION ABNORMAL [None]
  - HYDRONEPHROSIS [None]
  - HYPERCHROMIC ANAEMIA [None]
  - OEDEMA [None]
  - RENAL FAILURE ACUTE [None]
  - URINARY TRACT INFECTION [None]
